FAERS Safety Report 17250865 (Version 2)
Quarter: 2022Q1

REPORT INFORMATION
  Report Type: Spontaneous
  Country: US (occurrence: US)
  Receive Date: 20200109
  Receipt Date: 20220103
  Transmission Date: 20220424
  Serious: No
  Sender: FDA-Public Use
  Company Number: US-AUROBINDO-AUR-APL-2019-060267

PATIENT
  Age: 54 Year
  Sex: Female
  Weight: 63 kg

DRUGS (1)
  1. OXYCODONE HYDROCHLORIDE [Suspect]
     Active Substance: OXYCODONE HYDROCHLORIDE
     Indication: Headache
     Dosage: 02 TABLETS EVERY 4 TO 6 HOURS AND ALLOWED TO TAKE 10 TABLETS PER DAY
     Route: 065
     Dates: start: 20190816

REACTIONS (2)
  - Product substitution issue [Unknown]
  - Drug ineffective [Unknown]
